FAERS Safety Report 5889836-8 (Version None)
Quarter: 2008Q3

REPORT INFORMATION
  Report Type: 
  Country: None (occurrence: None)
  Receive Date: 20080919
  Receipt Date: 20080919
  Transmission Date: 20090109
  Serious: Yes (Hospitalization)
  Sender: FDA-Public Use
  Company Number: JP-BRISTOL-MYERS SQUIBB COMPANY-14323596

PATIENT
  Age: 74 Year
  Sex: Male

DRUGS (3)
  1. CARBIDOPA + LEVODOPA [Suspect]
     Indication: PARKINSON'S DISEASE
     Route: 048
     Dates: start: 20070730
  2. FAMOTIDINE TABS [Suspect]
     Dosage: ALSO FROM: 31AUG07-20AUG08; 356 DAYS
     Route: 048
     Dates: start: 20030630, end: 20070830
  3. LOXONIN [Suspect]
     Route: 048

REACTIONS (1)
  - RENAL DISORDER [None]
